FAERS Safety Report 16589173 (Version 1)
Quarter: 2019Q3

REPORT INFORMATION
  Report Type: Spontaneous
  Country: ES (occurrence: ES)
  Receive Date: 20190718
  Receipt Date: 20190718
  Transmission Date: 20191004
  Serious: Yes (Life-Threatening, Hospitalization)
  Sender: FDA-Public Use
  Company Number: ES-SA-2019SA191389

PATIENT
  Age: 74 Year
  Sex: Female

DRUGS (2)
  1. IRINOTECAN [Interacting]
     Active Substance: IRINOTECAN
     Indication: ADENOCARCINOMA OF COLON
     Dosage: 185 MG, QOW
     Route: 042
     Dates: start: 20190606, end: 20190606
  2. ZALTRAP [Suspect]
     Active Substance: ZIV-AFLIBERCEPT
     Indication: ADENOCARCINOMA OF COLON
     Dosage: 225 MG, QOW
     Route: 042
     Dates: start: 20190606, end: 20190606

REACTIONS (2)
  - Drug interaction [Unknown]
  - Agranulocytosis [Recovered/Resolved]

NARRATIVE: CASE EVENT DATE: 20190609
